FAERS Safety Report 5199049-3 (Version None)
Quarter: 2006Q4

REPORT INFORMATION
  Report Type: 
  Country: None (occurrence: None)
  Receive Date: 20061016
  Receipt Date: 20060619
  Transmission Date: 20070319
  Serious: No
  Sender: FDA-Public Use
  Company Number: 2006SP002455

PATIENT
  Age: 42 Year
  Sex: Female
  Weight: 53.5244 kg

DRUGS (2)
  1. LUNESTA [Suspect]
     Indication: INSOMNIA
     Dosage: 4 MG; 1X; ORAL
     Route: 048
     Dates: start: 20060619
  2. TYLENOL [Suspect]
     Dosage: HS; ORAL
     Route: 048

REACTIONS (1)
  - SOMNOLENCE [None]
